FAERS Safety Report 5440864-6 (Version None)
Quarter: 2007Q3

REPORT INFORMATION
  Report Type: 
  Country: None (occurrence: None)
  Receive Date: 20070731
  Receipt Date: 20070621
  Transmission Date: 20080115
  Serious: No
  Sender: FDA-Public Use
  Company Number: US200705006538

PATIENT
  Age: 68 Year
  Sex: Female

DRUGS (13)
  1. BYETTA [Suspect]
     Indication: TYPE 2 DIABETES MELLITUS
     Dosage: 5 UG, 2/D, SUBCUTANEOUS : 10 UG, 2/D, SUBCUTANEOUS
     Route: 058
     Dates: start: 20060516, end: 20060606
  2. BYETTA [Suspect]
     Indication: TYPE 2 DIABETES MELLITUS
     Dosage: 5 UG, 2/D, SUBCUTANEOUS : 10 UG, 2/D, SUBCUTANEOUS
     Route: 058
     Dates: start: 20060617, end: 20070514
  3. BYETTA [Suspect]
     Indication: TYPE 2 DIABETES MELLITUS
     Dosage: 5 UG, 2/D, SUBCUTANEOUS : 10 UG, 2/D, SUBCUTANEOUS
     Route: 058
     Dates: start: 20070522, end: 20070523
  4. BYETTA [Suspect]
     Indication: TYPE 2 DIABETES MELLITUS
     Dosage: 5 UG, 2/D, SUBCUTANEOUS : 10 UG, 2/D, SUBCUTANEOUS
     Route: 058
     Dates: start: 20070524
  5. EXENATIDE 10MCG PEN, DISPOSABLE DEVICE (EXENATIDE PEN 10MCG)) PEN,DISP [Concomitant]
  6. PEPCID [Concomitant]
  7. PREVACID [Concomitant]
  8. ALLOPURINOL [Concomitant]
  9. ASPIRIN [Concomitant]
  10. SINGULAIR [Concomitant]
  11. DIOVAN(HYDROCHLOROTHIAZIDE, VALSARTAN) [Concomitant]
  12. LANTUS [Concomitant]
  13. BYETTA [Suspect]

REACTIONS (2)
  - FEAR [None]
  - VOMITING [None]
